FAERS Safety Report 20662641 (Version 1)
Quarter: 2022Q2

REPORT INFORMATION
  Report Type: Spontaneous
  Country: JP (occurrence: JP)
  Receive Date: 20220401
  Receipt Date: 20220401
  Transmission Date: 20220721
  Serious: Yes (Death, Other)
  Sender: FDA-Public Use
  Company Number: JP-ASTELLAS-2021JP001390

PATIENT
  Age: 9 Decade
  Sex: Male

DRUGS (3)
  1. XOSPATA [Suspect]
     Active Substance: GILTERITINIB
     Indication: Acute myeloid leukaemia
     Route: 048
     Dates: start: 20201006, end: 20201204
  2. XOSPATA [Suspect]
     Active Substance: GILTERITINIB
     Route: 048
     Dates: start: 20201205, end: 20201231
  3. XOSPATA [Suspect]
     Active Substance: GILTERITINIB
     Route: 048
     Dates: start: 20210101, end: 20210110

REACTIONS (5)
  - Delirium [Recovering/Resolving]
  - Myelosuppression [Not Recovered/Not Resolved]
  - Cardiac failure [Unknown]
  - Asphyxia [Fatal]
  - Aspiration [Fatal]

NARRATIVE: CASE EVENT DATE: 20201203
